FAERS Safety Report 8533353-3 (Version None)
Quarter: 2012Q3

REPORT INFORMATION
  Report Type: 
  Country: None (occurrence: None)
  Receive Date: 20120724
  Receipt Date: 20120713
  Transmission Date: 20120928
  Serious: Yes (Hospitalization)
  Sender: FDA-Public Use
  Company Number: US-VERTEX PHARMACEUTICALS INC.-AE-2012-010526

PATIENT
  Sex: Female

DRUGS (3)
  1. INCIVEK [Suspect]
     Indication: HEPATITIS C
     Route: 048
     Dates: start: 20120131
  2. RIBAVIRIN [Concomitant]
     Indication: HEPATITIS C
     Dates: start: 20120131
  3. PEGASYS [Concomitant]
     Indication: HEPATITIS C
     Dates: start: 20120131

REACTIONS (4)
  - TRANSIENT ISCHAEMIC ATTACK [None]
  - DEHYDRATION [None]
  - ANXIETY [None]
  - FATIGUE [None]
